FAERS Safety Report 23755889 (Version 1)
Quarter: 2024Q2

REPORT INFORMATION
  Report Type: Other
  Country: US (occurrence: None)
  Receive Date: 20240418
  Receipt Date: 20240418
  Transmission Date: 20240715
  Serious: Yes (Hospitalization)
  Sender: FDA-Public Use
  Company Number: US-ROCHE-3544049

PATIENT
  Age: 64 Year
  Sex: Female
  Weight: 72.64 kg

DRUGS (1)
  1. OCREVUS [Suspect]
     Active Substance: OCRELIZUMAB
     Indication: Secondary progressive multiple sclerosis
     Dosage: UNKNOWN; 600 MG ANNUALLY; DOT: 15/JUN/2021
     Route: 042
     Dates: start: 20190409

REACTIONS (7)
  - Pneumonia [Recovered/Resolved]
  - Fatigue [Not Recovered/Not Resolved]
  - Depression [Unknown]
  - Immunodeficiency [Not Recovered/Not Resolved]
  - Drug hypersensitivity [Unknown]
  - Bladder disorder [Not Recovered/Not Resolved]
  - Drug hypersensitivity [Unknown]

NARRATIVE: CASE EVENT DATE: 20210101
